FAERS Safety Report 5387513-3 (Version None)
Quarter: 2007Q3

REPORT INFORMATION
  Report Type: 
  Country: None (occurrence: None)
  Receive Date: 20070711
  Receipt Date: 20070711
  Transmission Date: 20080115
  Serious: Yes (Death, Hospitalization, Other)
  Sender: FDA-Public Use
  Company Number: None

PATIENT
  Sex: Female
  Weight: 68.0396 kg

DRUGS (6)
  1. REMICADE [Suspect]
     Indication: RHEUMATOID ARTHRITIS
     Dosage: 500 MG Q7 WEEKS IV
     Route: 042
     Dates: start: 20020101, end: 20070502
  2. METHOTREXATE [Suspect]
     Indication: RHEUMATOID ARTHRITIS
     Dosage: 20 MG Q WEEK SC
     Route: 058
     Dates: start: 20000101, end: 20070601
  3. ELAVIL [Concomitant]
  4. FEMRT [Concomitant]
  5. PROTONIX [Concomitant]
  6. LEXAPRO [Concomitant]

REACTIONS (2)
  - ACUTE MYELOID LEUKAEMIA [None]
  - CEREBROVASCULAR ACCIDENT [None]
